FAERS Safety Report 18656131 (Version 2)
Quarter: 2020Q4

REPORT INFORMATION
  Report Type: Spontaneous
  Country: GB (occurrence: GB)
  Receive Date: 20201223
  Receipt Date: 20201229
  Transmission Date: 20210114
  Serious: Yes (Hospitalization)
  Sender: FDA-Public Use
  Company Number: GB-NEBO-PC006107

PATIENT
  Age: 40 Year
  Sex: Female
  Weight: 55 kg

DRUGS (1)
  1. MONOFER [Suspect]
     Active Substance: IRON ISOMALTOSIDE 1000
     Indication: IRON DEFICIENCY ANAEMIA
     Route: 042
     Dates: start: 20201020, end: 20201020

REACTIONS (8)
  - Amylase increased [Recovering/Resolving]
  - Blood pressure decreased [Recovering/Resolving]
  - Alanine aminotransferase increased [Recovering/Resolving]
  - Overdose [Recovered/Resolved]
  - Serum ferritin increased [Recovering/Resolving]
  - Blood test abnormal [Recovering/Resolving]
  - Dyspepsia [Recovering/Resolving]
  - Skin discolouration [Recovering/Resolving]

NARRATIVE: CASE EVENT DATE: 20201020
